FAERS Safety Report 6297858-0 (Version None)
Quarter: 2009Q3

REPORT INFORMATION
  Report Type: 
  Country: None (occurrence: None)
  Receive Date: 20090805
  Receipt Date: 20090729
  Transmission Date: 20100115
  Serious: Yes (Hospitalization, Disabling)
  Sender: FDA-Public Use
  Company Number: US-GENENTECH-287018

PATIENT
  Sex: Female
  Weight: 24 kg

DRUGS (2)
  1. SOMATROPIN [Suspect]
     Indication: CYTOGENETIC ABNORMALITY
     Dosage: 1 MG, QD
     Dates: start: 20080819, end: 20090501
  2. SOMATROPIN [Suspect]
     Dosage: 0.6 MG, QD
     Dates: start: 20041115

REACTIONS (1)
  - JUVENILE ARTHRITIS [None]
